FAERS Safety Report 10575873 (Version 1)
Quarter: 2014Q4

REPORT INFORMATION
  Report Type: Spontaneous
  Country: US (occurrence: None)
  Receive Date: 20141110
  Receipt Date: 20141110
  Transmission Date: 20150529
  Serious: Yes (Hospitalization)
  Sender: FDA-Public Use
  Company Number: None

PATIENT
  Age: 73 Year
  Sex: Female
  Weight: 63.5 kg

DRUGS (1)
  1. CARBOPLATIN. [Suspect]
     Active Substance: CARBOPLATIN
     Route: 042
     Dates: start: 20140902

REACTIONS (8)
  - Dyspnoea [None]
  - Paraesthesia [None]
  - Hyperhidrosis [None]
  - Blood pressure decreased [None]
  - Anxiety [None]
  - Paraesthesia oral [None]
  - Pallor [None]
  - Moaning [None]

NARRATIVE: CASE EVENT DATE: 20140902
